FAERS Safety Report 12074041 (Version 1)
Quarter: 2016Q1

REPORT INFORMATION
  Report Type: Spontaneous
  Country: MX (occurrence: MX)
  Receive Date: 20160212
  Receipt Date: 20160212
  Transmission Date: 20160526
  Serious: Yes (Other)
  Sender: FDA-Public Use
  Company Number: MX-SA-2016SA023984

PATIENT
  Age: 73 Year
  Sex: Female

DRUGS (4)
  1. AVAPRO [Suspect]
     Active Substance: IRBESARTAN
     Indication: HYPERTENSION
     Route: 048
     Dates: start: 201512, end: 201602
  2. AVAPRO [Suspect]
     Active Substance: IRBESARTAN
     Indication: HYPERTENSION
     Route: 048
     Dates: end: 201512
  3. FELODIPINE. [Concomitant]
     Active Substance: FELODIPINE
     Route: 048
  4. MINIPRES [Concomitant]
     Active Substance: PRAZOSIN HYDROCHLORIDE
     Indication: BLOOD PRESSURE MEASUREMENT
     Dates: end: 201602

REACTIONS (2)
  - Hypertension [Not Recovered/Not Resolved]
  - Hypertension [Not Recovered/Not Resolved]

NARRATIVE: CASE EVENT DATE: 201512
